FAERS Safety Report 5002508-7 (Version None)
Quarter: 2006Q2

REPORT INFORMATION
  Report Type: 
  Country: None (occurrence: None)
  Receive Date: 20060515
  Receipt Date: 20050419
  Transmission Date: 20061013
  Serious: Yes (Hospitalization, Other)
  Sender: FDA-Public Use
  Company Number: US-MERCK-0504USA03807

PATIENT
  Age: 83 Year
  Sex: Male
  Weight: 91 kg

DRUGS (10)
  1. NITROGLYCERIN [Concomitant]
     Route: 060
  2. ISOSORBIDE DINITRATE [Concomitant]
     Route: 048
  3. FLOMAX (MORNIFLUMATE) [Concomitant]
     Route: 048
  4. PROSCAR [Concomitant]
     Route: 048
  5. VIOXX [Suspect]
     Indication: BACK PAIN
     Route: 048
     Dates: start: 20030101, end: 20040801
  6. PLAVIX [Concomitant]
     Route: 048
  7. ECOTRIN [Concomitant]
     Route: 048
  8. ZOCOR [Concomitant]
     Route: 048
  9. ATENOLOL [Concomitant]
     Route: 048
  10. LISINOPRIL [Concomitant]
     Route: 048

REACTIONS (16)
  - ACUTE CORONARY SYNDROME [None]
  - ANGINA UNSTABLE [None]
  - ANGIOPATHY [None]
  - ARTERIOSCLEROSIS [None]
  - BENIGN PROSTATIC HYPERPLASIA [None]
  - BLADDER SPASM [None]
  - BRADYCARDIA [None]
  - BUNDLE BRANCH BLOCK RIGHT [None]
  - CEREBROVASCULAR ACCIDENT [None]
  - HAEMATURIA [None]
  - MYOCARDIAL INFARCTION [None]
  - OBSTRUCTIVE UROPATHY [None]
  - POLYTRAUMATISM [None]
  - SPINAL OSTEOARTHRITIS [None]
  - URINARY RETENTION [None]
  - URINARY TRACT INFECTION [None]
